FAERS Safety Report 21527985 (Version 1)
Quarter: 2022Q4

REPORT INFORMATION
  Report Type: Spontaneous
  Country: US (occurrence: US)
  Receive Date: 20221031
  Receipt Date: 20221031
  Transmission Date: 20230112
  Serious: No
  Sender: FDA-Public Use
  Company Number: US-RECKITT BENCKISER HEALTHCARE INT LIMITED-RB-089806-2022

PATIENT
  Age: 65 Year
  Sex: Female

DRUGS (1)
  1. MUCINEX [Suspect]
     Active Substance: GUAIFENESIN
     Indication: Nasopharyngitis
     Dosage: 600 MILLIGRAM, SINGLE
     Route: 048
     Dates: start: 20220510

REACTIONS (4)
  - Eye pruritus [Unknown]
  - Lacrimation increased [Unknown]
  - Lip pruritus [Unknown]
  - Lip swelling [Unknown]

NARRATIVE: CASE EVENT DATE: 20220510
